FAERS Safety Report 8535324 (Version 5)
Quarter: 2013Q2

REPORT INFORMATION
  Report Type: Spontaneous
  Country: US (occurrence: US)
  Receive Date: 20120430
  Receipt Date: 20130510
  Transmission Date: 20140414
  Serious: Yes (Hospitalization)
  Sender: FDA-Public Use
  Company Number: US-BIOGENIDEC-2012BI013797

PATIENT
  Age: 61 Year
  Sex: Female

DRUGS (9)
  1. AVONEX [Suspect]
     Indication: MULTIPLE SCLEROSIS
     Route: 030
     Dates: start: 20100310
  2. AVONEX [Suspect]
     Indication: MULTIPLE SCLEROSIS
     Route: 030
     Dates: start: 20120131, end: 20120228
  3. AVONEX [Suspect]
     Indication: MULTIPLE SCLEROSIS
     Route: 030
     Dates: start: 20120228, end: 20120430
  4. AVONEX [Suspect]
     Indication: MULTIPLE SCLEROSIS
     Route: 030
     Dates: start: 20120501
  5. AVONEX [Suspect]
     Indication: MULTIPLE SCLEROSIS
     Route: 030
     Dates: start: 201208
  6. ACETAMINOPHEN [Concomitant]
  7. PERCOCET [Concomitant]
     Dates: start: 201203, end: 20120305
  8. DILAUDID [Concomitant]
     Dates: start: 20120305
  9. NAC [Concomitant]
     Dates: start: 20120308

REACTIONS (12)
  - Lumbar radiculopathy [Recovered/Resolved]
  - Spinal osteoarthritis [Recovered/Resolved]
  - Drug-induced liver injury [Recovered/Resolved]
  - Oedema [Recovered/Resolved]
  - Colitis [Recovered/Resolved]
  - Toxicity to various agents [Recovered/Resolved]
  - Apparent death [Recovered/Resolved]
  - Fungal oesophagitis [Not Recovered/Not Resolved]
  - Gastric ulcer [Not Recovered/Not Resolved]
  - Procedural pain [Unknown]
  - Hepatic enzyme increased [Recovered/Resolved]
  - Diarrhoea [Recovered/Resolved]
